FAERS Safety Report 4281522-3 (Version None)
Quarter: 2004Q1

REPORT INFORMATION
  Report Type: 
  Country: None (occurrence: None)
  Receive Date: 20040128
  Receipt Date: 20040120
  Transmission Date: 20041129
  Serious: Yes (Hospitalization, Other)
  Sender: FDA-Public Use
  Company Number: 2004194914JP

PATIENT
  Age: 83 Year
  Sex: Male

DRUGS (11)
  1. HALCION [Suspect]
     Dosage: 0.125 MG, PRN, ORAL
     Route: 048
     Dates: end: 20040106
  2. DOGMATYL (SULPIRIDE) [Suspect]
     Dosage: 100 MG, BID, ORAL
     Route: 048
  3. HARNAL (TAMSULOSIN HYDROCHLORIDE) [Suspect]
     Dosage: ORAL
     Route: 048
  4. DAIO-KANZO-TO [Concomitant]
  5. BIOFERMIN (BACILLUS SUBTILIS, STREPTOCOCCUS FAECALIS) [Concomitant]
  6. CANDESARTAN (CANDESARTAN) [Concomitant]
  7. LANIRAPID (METILDIGOXIN) [Concomitant]
  8. LAFUTIDINE [Concomitant]
  9. TAKEPRON [Concomitant]
  10. FRANDOL [Concomitant]
  11. BALANCE (CHLORDIAZEPOXIDE HYDROCHLORIDE) [Concomitant]

REACTIONS (2)
  - INTERSTITIAL LUNG DISEASE [None]
  - RHABDOMYOLYSIS [None]
